FAERS Safety Report 10016041 (Version 1)
Quarter: 2014Q1

REPORT INFORMATION
  Report Type: Report from Study
  Country: US (occurrence: US)
  Receive Date: 20140317
  Receipt Date: 20140317
  Transmission Date: 20141002
  Serious: Yes (Other)
  Sender: FDA-Public Use
  Company Number: US-BAXTER-2014BAX013119

PATIENT
  Age: 46 Year
  Sex: Female

DRUGS (8)
  1. ENDOXAN [Suspect]
     Indication: PULMONARY ALVEOLAR HAEMORRHAGE
     Route: 048
  2. ENDOXAN [Suspect]
     Indication: ANTIPHOSPHOLIPID SYNDROME
  3. AZATHIOPRINE [Suspect]
     Indication: PULMONARY ALVEOLAR HAEMORRHAGE
     Route: 048
  4. AZATHIOPRINE [Suspect]
     Indication: ANTIPHOSPHOLIPID SYNDROME
  5. MYCOPHENOLATE MOFETIL [Suspect]
     Indication: PULMONARY ALVEOLAR HAEMORRHAGE
     Route: 048
  6. MYCOPHENOLATE MOFETIL [Suspect]
     Indication: ANTIPHOSPHOLIPID SYNDROME
  7. RITUXIMAB [Suspect]
     Indication: PULMONARY ALVEOLAR HAEMORRHAGE
     Dosage: 4 DOSES
     Route: 065
  8. RITUXIMAB [Suspect]
     Indication: ANTIPHOSPHOLIPID SYNDROME
     Dosage: X 2 DOSES AT 7 AND 15 MONTHS FROM THE FIRST THERAPY
     Route: 042

REACTIONS (3)
  - Disease progression [Unknown]
  - Condition aggravated [Recovered/Resolved]
  - Pulmonary alveolar haemorrhage [Recovered/Resolved]
